FAERS Safety Report 12956847 (Version 2)
Quarter: 2017Q1

REPORT INFORMATION
  Report Type: Spontaneous
  Country: DE (occurrence: DE)
  Receive Date: 20161118
  Receipt Date: 20170118
  Transmission Date: 20170428
  Serious: Yes (Life-Threatening, Disabling)
  Sender: FDA-Public Use
  Company Number: DE-ELI_LILLY_AND_COMPANY-DE201611005659

PATIENT
  Age: 56 Year
  Sex: Male

DRUGS (9)
  1. RAMIPRIL. [Concomitant]
     Active Substance: RAMIPRIL
     Dosage: 10 MG, QD
  2. KOMBOGLYZE [Concomitant]
     Active Substance: METFORMIN HYDROCHLORIDE\SAXAGLIPTIN
     Dosage: UNK, BID
  3. SIMVASTATIN. [Concomitant]
     Active Substance: SIMVASTATIN
     Dosage: 20 MG, QD
  4. ZYPADHERA [Suspect]
     Active Substance: OLANZAPINE PAMOATE
     Indication: PAEDOPHILIA
     Dosage: 150 MG, MONTHLY (1/M)
     Route: 030
     Dates: start: 2007, end: 201610
  5. CITALOPRAM [Concomitant]
     Active Substance: CITALOPRAM HYDROBROMIDE
     Indication: PRODUCT USED FOR UNKNOWN INDICATION
     Dosage: UNK UNK, BID
     Route: 065
  6. ACTRAPID [Concomitant]
     Active Substance: INSULIN HUMAN
     Dosage: UNK, OTHER
  7. TRILEPTAL [Concomitant]
     Active Substance: OXCARBAZEPINE
     Indication: PRODUCT USED FOR UNKNOWN INDICATION
     Dosage: 300 MG, QD
     Route: 065
  8. CITALOPRAM [Concomitant]
     Active Substance: CITALOPRAM HYDROBROMIDE
     Dosage: UNK UNK, QD
     Route: 065
  9. CANDESARTAN [Concomitant]
     Active Substance: CANDESARTAN
     Dosage: 8 MG, QD

REACTIONS (10)
  - Aphasia [Unknown]
  - Anal incontinence [Unknown]
  - Apraxia [Unknown]
  - Dysphagia [Unknown]
  - Hemiplegia [Unknown]
  - Urinary incontinence [Unknown]
  - Cerebral infarction [Not Recovered/Not Resolved]
  - Off label use [Unknown]
  - Carotid artery occlusion [Not Recovered/Not Resolved]
  - Gastrostomy tube site complication [Unknown]

NARRATIVE: CASE EVENT DATE: 20161013
